FAERS Safety Report 21539174 (Version 1)
Quarter: 2022Q4

REPORT INFORMATION
  Report Type: Spontaneous
  Country: US (occurrence: US)
  Receive Date: 20221102
  Receipt Date: 20221102
  Transmission Date: 20230113
  Serious: Yes (Life-Threatening, Hospitalization, Other)
  Sender: FDA-Public Use
  Company Number: US-Accord-284080

PATIENT
  Age: 58 Year
  Sex: Female

DRUGS (1)
  1. APIXABAN [Suspect]
     Active Substance: APIXABAN
     Indication: Embolism venous
     Route: 048

REACTIONS (3)
  - Splenic rupture [Recovered/Resolved]
  - Haemorrhage [Recovered/Resolved]
  - Hyponatraemia [Unknown]
